FAERS Safety Report 4577110-1 (Version None)
Quarter: 2005Q1

REPORT INFORMATION
  Report Type: 
  Country: None (occurrence: None)
  Receive Date: 20050210
  Receipt Date: 20020814
  Transmission Date: 20050727
  Serious: Yes (Death)
  Sender: FDA-Public Use
  Company Number: US-ROCHE-319597

PATIENT
  Age: 33 Year
  Sex: Male
  Weight: 64.4 kg

DRUGS (2)
  1. LARIAM [Suspect]
     Indication: MALARIA PROPHYLAXIS
     Dosage: TAKEN WEEKLY
     Route: 048
     Dates: start: 20020228, end: 20020606
  2. PRIMAQUINE PHOSPHATE [Concomitant]
     Indication: MALARIA PROPHYLAXIS
     Route: 048
     Dates: start: 20020509, end: 20020523

REACTIONS (20)
  - ABNORMAL BEHAVIOUR [None]
  - AGGRESSION [None]
  - ANGER [None]
  - BRAIN OEDEMA [None]
  - COMMUNICATION DISORDER [None]
  - COMPLETED SUICIDE [None]
  - DISORIENTATION [None]
  - DYSPHEMIA [None]
  - FEELING ABNORMAL [None]
  - INCOHERENT [None]
  - INJURY ASPHYXIATION [None]
  - MARITAL PROBLEM [None]
  - MOOD ALTERED [None]
  - MURDER [None]
  - NERVOUSNESS [None]
  - PSYCHOTIC DISORDER [None]
  - PULMONARY CONGESTION [None]
  - SOCIAL AVOIDANT BEHAVIOUR [None]
  - STRESS [None]
  - TREMOR [None]
